FAERS Safety Report 10167680 (Version 1)
Quarter: 2014Q2

REPORT INFORMATION
  Report Type: Spontaneous
  Country: SG (occurrence: SG)
  Receive Date: 20140512
  Receipt Date: 20140512
  Transmission Date: 20141212
  Serious: Yes (Other)
  Sender: FDA-Public Use
  Company Number: SG-ACTAVIS-2014-09720

PATIENT
  Age: 11 Year
  Sex: Female

DRUGS (6)
  1. GEMCITABINE (UNKNOWN) [Suspect]
     Indication: OSTEOSARCOMA
     Dosage: 900 MG/M2, UNKNOWN
     Route: 065
  2. DOCETAXEL (UNKNOWN) [Suspect]
     Indication: OSTEOSARCOMA
     Dosage: 100 MG/M2, UNKNOWN
     Route: 065
  3. TRIMETHOPRIM-SULFAMETHOXAZOLE (UNKNOWN) [Suspect]
     Indication: PRODUCT USED FOR UNKNOWN INDICATION
     Dosage: UNKNOWN
     Route: 065
  4. DIPHENHYDRAMINE [Concomitant]
     Indication: OSTEOSARCOMA
     Dosage: UNKNOWN
     Route: 065
  5. ONDANSETRON [Concomitant]
     Indication: OSTEOSARCOMA
     Dosage: UNKNOWN
     Route: 065
  6. DEXAMETHASONE [Concomitant]
     Indication: OSTEOSARCOMA
     Dosage: UNKNOWN
     Route: 065

REACTIONS (5)
  - Toxic skin eruption [Recovering/Resolving]
  - Pyrexia [Unknown]
  - Neutropenia [Unknown]
  - Mouth ulceration [Unknown]
  - Diarrhoea [Unknown]
